FAERS Safety Report 6110083-9 (Version None)
Quarter: 2009Q1

REPORT INFORMATION
  Report Type: 
  Country: None (occurrence: None)
  Receive Date: 20090306
  Receipt Date: 20090224
  Transmission Date: 20090719
  Serious: Yes (Other)
  Sender: FDA-Public Use
  Company Number: CHPA2009US05610

PATIENT
  Age: 5 Year
  Sex: Female
  Weight: 24.9 kg

DRUGS (2)
  1. TRIAMINIC FLU COUGH FEVER NO PSE (NCH) (ACETAMINOPHEN (PARACETAMOL), C [Suspect]
     Indication: COUGH
     Dosage: 1.5 TSP, BID, ORAL
     Route: 048
     Dates: start: 20090219, end: 20090220
  2. TRIAMINIC FLU COUGH FEVER NO PSE (NCH) (ACETAMINOPHEN (PARACETAMOL), C [Suspect]
     Indication: PYREXIA
     Dosage: 1.5 TSP, BID, ORAL
     Route: 048
     Dates: start: 20090219, end: 20090220

REACTIONS (3)
  - CONVULSION [None]
  - DRUG INEFFECTIVE [None]
  - OVERDOSE [None]
